FAERS Safety Report 10094064 (Version 8)
Quarter: 2014Q2

REPORT INFORMATION
  Report Type: Spontaneous
  Country: GB (occurrence: GB)
  Receive Date: 20140422
  Receipt Date: 20140617
  Transmission Date: 20141212
  Serious: Yes (Other)
  Sender: FDA-Public Use
  Company Number: GB-009507513-1404GBR007383

PATIENT
  Age: 74 Year
  Sex: Male

DRUGS (1)
  1. ONCOTICE [Suspect]
     Indication: BLADDER CANCER
     Dosage: DOSE:WEEKLY 6 TIMES, TOTALY DAILY DOSE WEEKLY 3 TIMES
     Route: 043
     Dates: start: 20140319

REACTIONS (6)
  - Cataract operation [Recovered/Resolved]
  - Conjunctivitis [Recovered/Resolved]
  - Retinal vein thrombosis [Recovered/Resolved]
  - Vision blurred [Recovered/Resolved]
  - Ocular hyperaemia [Recovered/Resolved]
  - Thrombosis [Recovered/Resolved]
